FAERS Safety Report 15639883 (Version 2)
Quarter: 2018Q4

REPORT INFORMATION
  Report Type: Spontaneous
  Country: US (occurrence: US)
  Receive Date: 20181120
  Receipt Date: 20181130
  Transmission Date: 20190205
  Serious: No
  Sender: FDA-Public Use
  Company Number: US-PFIZER INC-2018474104

PATIENT
  Age: 48 Year
  Sex: Female

DRUGS (8)
  1. PILOCARPINE. [Concomitant]
     Active Substance: PILOCARPINE
     Dosage: 5 MG, ONCE A DAY
  2. HYDROXYCHLOROQUINE [Concomitant]
     Active Substance: HYDROXYCHLOROQUINE
     Indication: SJOGREN^S SYNDROME
     Dosage: 200 MG, TWICE A DAY
  3. PRISTIQ EXTENDED-RELEASE [Suspect]
     Active Substance: DESVENLAFAXINE SUCCINATE
     Indication: SJOGREN^S SYNDROME
     Dosage: 100 MG, ONCE A DAY
     Route: 048
     Dates: start: 20181029
  4. LINZESS [Concomitant]
     Active Substance: LINACLOTIDE
     Indication: CONSTIPATION
  5. SYNTHROID [Concomitant]
     Active Substance: LEVOTHYROXINE SODIUM
     Indication: HYPOTHYROIDISM
     Dosage: 0.125 MG, PER DAY (5 DAYS PER WEEK)
  6. PRISTIQ EXTENDED-RELEASE [Suspect]
     Active Substance: DESVENLAFAXINE SUCCINATE
     Indication: CONSTIPATION
  7. LINZESS [Concomitant]
     Active Substance: LINACLOTIDE
     Indication: SJOGREN^S SYNDROME
     Dosage: 145 MG, ONCE A DAY
  8. INVEGA [PALIPERIDONE] [Concomitant]
     Indication: AFFECTIVE DISORDER
     Dosage: 1.5 MG, ONCE A DAY

REACTIONS (1)
  - Product use in unapproved indication [Unknown]

NARRATIVE: CASE EVENT DATE: 20181029
